FAERS Safety Report 24838646 (Version 7)
Quarter: 2025Q4

REPORT INFORMATION
  Report Type: Spontaneous
  Country: US (occurrence: US)
  Receive Date: 20250113
  Receipt Date: 20251215
  Transmission Date: 20260117
  Serious: Yes (Hospitalization, Other)
  Sender: BIOGEN
  Company Number: US-BIOGEN-2025BI01296362

PATIENT
  Age: 76 Year
  Sex: Male

DRUGS (6)
  1. TYSABRI [Suspect]
     Active Substance: NATALIZUMAB
     Indication: Multiple sclerosis
  2. TYSABRI [Suspect]
     Active Substance: NATALIZUMAB
     Dosage: DOSAGE TEXT:INFUSED OVER 1 HOUR? LAST INFUSION IN NOVEMBER 2024.
     Dates: end: 202411
  3. TYSABRI [Suspect]
     Active Substance: NATALIZUMAB
     Dates: start: 20220201, end: 20250220
  4. PREDNISONE [Concomitant]
     Active Substance: PREDNISONE
     Indication: Product used for unknown indication
  5. AMPYRA [Concomitant]
     Active Substance: DALFAMPRIDINE
     Indication: Product used for unknown indication
  6. LYVISPAH [Concomitant]
     Active Substance: BACLOFEN
     Indication: Product used for unknown indication

REACTIONS (6)
  - Encephalitis autoimmune [Recovered/Resolved with Sequelae]
  - Seizure [Unknown]
  - Multiple sclerosis relapse [Not Recovered/Not Resolved]
  - Psychotic disorder [Unknown]
  - Catatonia [Unknown]
  - Urinary tract infection [Not Recovered/Not Resolved]

NARRATIVE: CASE EVENT DATE: 20240101
